FAERS Safety Report 10120419 (Version 3)
Quarter: 2014Q2

REPORT INFORMATION
  Report Type: Spontaneous
  Country: JP (occurrence: JP)
  Receive Date: 20140425
  Receipt Date: 20140530
  Transmission Date: 20141212
  Serious: Yes (Other)
  Sender: FDA-Public Use
  Company Number: JP-PFIZER INC-2014114135

PATIENT
  Age: 30 Year
  Sex: Female

DRUGS (6)
  1. LYRICA [Suspect]
     Indication: NEURALGIA
     Dosage: 25 MG, DAILY
     Route: 048
     Dates: start: 20140322, end: 20140328
  2. LYRICA [Suspect]
     Dosage: 50 MG, DAILY
     Route: 048
     Dates: start: 20140329, end: 20140404
  3. LYRICA [Suspect]
     Dosage: 100 MG, DAILY
     Route: 048
     Dates: start: 20140405, end: 20140408
  4. LYRICA [Suspect]
     Dosage: 200 MG, DAILY
     Route: 048
     Dates: start: 20140409, end: 20140413
  5. LYRICA [Suspect]
     Dosage: 300 MG, DAILY
     Route: 048
     Dates: start: 20140414, end: 20140420
  6. LYRICA [Suspect]
     Dosage: 150 MG, DAILY
     Route: 048
     Dates: start: 20140421

REACTIONS (2)
  - Brain natriuretic peptide increased [Recovered/Resolved]
  - Oedema peripheral [Recovered/Resolved]
